FAERS Safety Report 16723332 (Version 1)
Quarter: 2019Q3

REPORT INFORMATION
  Report Type: Spontaneous
  Country: DE (occurrence: DE)
  Receive Date: 20190821
  Receipt Date: 20190821
  Transmission Date: 20191005
  Serious: Yes (Hospitalization)
  Sender: FDA-Public Use
  Company Number: DE-TEVA-2019-DE-1094158

PATIENT
  Age: 92 Year
  Sex: Female

DRUGS (8)
  1. PANTOPRAZOL [Concomitant]
     Active Substance: PANTOPRAZOLE SODIUM
     Dosage: 40 MG, 0-0-1-0
  2. ISOSORBIDDINITRAT [Concomitant]
     Active Substance: ISOSORBIDE DINITRATE
     Dosage: 20 MG, 1-0-1-0
  3. METAMIZOL [Concomitant]
     Active Substance: METAMIZOLE SODIUM
     Dosage: NK MG, 30-30-30-0, DROPS
  4. TORASEMID [Concomitant]
     Active Substance: TORSEMIDE
     Dosage: 10 MG, 1-1-0-0
  5. KALIUM [Concomitant]
     Active Substance: POTASSIUM CHLORIDE
     Dosage: 600 MG, 1-0-0-0
  6. MELPERON [Concomitant]
     Active Substance: MELPERONE
     Dosage: 2.5 ML, 0-0-1-0, JUICE
  7. METOPROLOL. [Suspect]
     Active Substance: METOPROLOL
     Dosage: 47.5 MG, 1-0-1-0
  8. SYMBICORT TURBUHALER 320/9MIKROGRAMM/DOSIS [Concomitant]
     Dosage: 320|9 MICROGRAMS, DEMAND

REACTIONS (2)
  - Dyspnoea [Unknown]
  - Cyanosis [Unknown]
